FAERS Safety Report 8796017 (Version 1)
Quarter: 2012Q4

REPORT INFORMATION
  Report Type: 
  Country: US (occurrence: US)
  Receive Date: 20120920
  Receipt Date: 20120920
  Transmission Date: 20130627
  Serious: No
  Sender: FDA-Public Use
  Company Number: US-PFIZER INC-2012231821

PATIENT
  Sex: Male

DRUGS (1)
  1. PRISTIQ [Suspect]
     Dosage: 100 mg, UNK

REACTIONS (3)
  - Medication residue [Unknown]
  - Gastrointestinal disorder [Unknown]
  - Product quality issue [Unknown]
